FAERS Safety Report 22045371 (Version 1)
Quarter: 2023Q1

REPORT INFORMATION
  Report Type: Spontaneous
  Country: CN (occurrence: CN)
  Receive Date: 20230228
  Receipt Date: 20230228
  Transmission Date: 20230417
  Serious: Yes (Hospitalization)
  Sender: FDA-Public Use
  Company Number: CN-PFIZER INC-PV202300036274

PATIENT
  Age: 18 Day
  Sex: Female
  Weight: 3.83 kg

DRUGS (1)
  1. AZITHROMYCIN [Suspect]
     Active Substance: AZITHROMYCIN
     Indication: Neonatal infection
     Dosage: 10 MG/KG, 1X/DAY
     Route: 048
     Dates: start: 20230213, end: 20230215

REACTIONS (1)
  - Diarrhoea neonatal [Recovering/Resolving]

NARRATIVE: CASE EVENT DATE: 20230215
